FAERS Safety Report 7749751-1 (Version None)
Quarter: 2011Q3

REPORT INFORMATION
  Report Type: 
  Country: None (occurrence: None)
  Receive Date: 20110914
  Receipt Date: 20110909
  Transmission Date: 20111222
  Serious: Yes (Other)
  Sender: FDA-Public Use
  Company Number: FR-ROCHE-800168

PATIENT
  Sex: Female

DRUGS (2)
  1. EXEMESTANE [Suspect]
     Dosage: LAST DOSE PRIOR TO SAE: 03 MARCH 2011, PERMANENTLY DISCONTINUED
     Route: 065
     Dates: start: 20101028, end: 20110323
  2. BEVACIZUMAB [Suspect]
     Dosage: PERMANENTLY DISCONTINUED
     Route: 065
     Dates: start: 20101028, end: 20110303

REACTIONS (1)
  - BLOOD BILIRUBIN INCREASED [None]
